FAERS Safety Report 7931162-7 (Version None)
Quarter: 2011Q4

REPORT INFORMATION
  Report Type: 
  Country: None (occurrence: None)
  Receive Date: 20111121
  Receipt Date: 20111115
  Transmission Date: 20120403
  Serious: Yes (Other)
  Sender: FDA-Public Use
  Company Number: US-MERCK-1109USA01914

PATIENT
  Age: 43 Year
  Sex: Male
  Weight: 93 kg

DRUGS (5)
  1. DIOVAN [Concomitant]
     Indication: HYPERTENSION
     Route: 065
     Dates: start: 20000101
  2. ENBREL [Concomitant]
     Indication: RHEUMATOID ARTHRITIS
     Route: 065
     Dates: start: 20060101
  3. FOSAMAX [Suspect]
     Indication: OSTEOPOROSIS
     Route: 048
     Dates: start: 20090201, end: 20100901
  4. REMICADE [Concomitant]
     Indication: RHEUMATOID ARTHRITIS
     Route: 065
     Dates: end: 20090101
  5. PREDNISONE [Concomitant]
     Indication: RHEUMATOID ARTHRITIS
     Route: 065
     Dates: start: 20060101

REACTIONS (10)
  - LUPUS-LIKE SYNDROME [None]
  - TEMPOROMANDIBULAR JOINT SYNDROME [None]
  - CYST [None]
  - TOOTH DISORDER [None]
  - TONSILLAR DISORDER [None]
  - TYPE 2 DIABETES MELLITUS [None]
  - OSTEONECROSIS OF JAW [None]
  - FIBROMYALGIA [None]
  - ORAL TORUS [None]
  - ORAL DISCHARGE [None]
